FAERS Safety Report 5806596-7 (Version None)
Quarter: 2008Q3

REPORT INFORMATION
  Report Type: 
  Country: None (occurrence: None)
  Receive Date: 20080710
  Receipt Date: 20080630
  Transmission Date: 20090109
  Serious: Yes (Other)
  Sender: FDA-Public Use
  Company Number: PHBS2008BR04995

PATIENT
  Age: 84 Year
  Sex: Male

DRUGS (4)
  1. PAMIDRONATE DISODIUM [Suspect]
     Indication: HYPERCALCAEMIA OF MALIGNANCY
     Dosage: 90 MG, ONCE/SINGLE
  2. PAMIDRONATE DISODIUM [Suspect]
     Indication: OSTEITIS DEFORMANS
     Dosage: 90 MG, ONCE/SINGLE
  3. ZOLEDRONIC ACID [Suspect]
     Indication: HYPERCALCAEMIA OF MALIGNANCY
     Dosage: 4 MG 3 TIMES
  4. ZOLEDRONIC ACID [Suspect]
     Indication: OSTEITIS DEFORMANS
     Dosage: 4 MG 8 TIMES

REACTIONS (6)
  - BONE DEBRIDEMENT [None]
  - BONE LESION [None]
  - IMPAIRED HEALING [None]
  - LOCALISED INFECTION [None]
  - MAXILLOFACIAL OPERATION [None]
  - OSTEONECROSIS [None]
